FAERS Safety Report 26173037 (Version 1)
Quarter: 2025Q4

REPORT INFORMATION
  Report Type: Spontaneous
  Country: US (occurrence: US)
  Receive Date: 20251218
  Receipt Date: 20251218
  Transmission Date: 20260117
  Serious: No
  Sender: LUPIN
  Company Number: US-LUPIN PHARMACEUTICALS INC.-2025-11364

PATIENT
  Sex: Male
  Weight: 86.168 kg

DRUGS (1)
  1. BUPROPION HYDROCHLORIDE [Suspect]
     Active Substance: BUPROPION HYDROCHLORIDE
     Indication: Depression
     Dosage: UNK
     Route: 065

REACTIONS (4)
  - Abnormal dreams [Unknown]
  - Anxiety [Unknown]
  - Product substitution issue [Unknown]
  - Therapeutic response decreased [Unknown]
